FAERS Safety Report 19512899 (Version 1)
Quarter: 2021Q3

REPORT INFORMATION
  Report Type: Spontaneous
  Country: CN (occurrence: CN)
  Receive Date: 20210709
  Receipt Date: 20210709
  Transmission Date: 20211014
  Serious: Yes (Other)
  Sender: FDA-Public Use
  Company Number: CN-009507513-2107CHN001069

PATIENT
  Age: 95 Year
  Sex: Female
  Weight: 44 kg

DRUGS (2)
  1. TIENAM [Suspect]
     Active Substance: CILASTATIN SODIUM\IMIPENEM
     Indication: SEPSIS
     Dosage: 1 GRAM, 3 TIMES A DAY, EVERY 8 HOURS (Q8H)
     Route: 041
     Dates: start: 20210324, end: 20210326
  2. NORMAL SALINE [Concomitant]
     Active Substance: SODIUM CHLORIDE
     Indication: VEHICLE SOLUTION USE
     Dosage: 100 MILLILITER, Q8H
     Route: 041
     Dates: start: 20210324, end: 20210326

REACTIONS (1)
  - Epilepsy [Recovering/Resolving]

NARRATIVE: CASE EVENT DATE: 20210325
